FAERS Safety Report 6780983-5 (Version None)
Quarter: 2010Q2

REPORT INFORMATION
  Report Type: 
  Country: None (occurrence: None)
  Receive Date: 20100621
  Receipt Date: 20100115
  Transmission Date: 20101027
  Serious: Yes (Other)
  Sender: FDA-Public Use
  Company Number: US-ASTRAZENECA-2009SE15664

PATIENT
  Age: 56 Year
  Sex: Female
  Weight: 83.5 kg

DRUGS (8)
  1. SEROQUEL [Suspect]
     Indication: DEPRESSION
     Route: 048
     Dates: start: 20040101, end: 20070101
  2. SEROQUEL [Suspect]
     Route: 048
     Dates: start: 20070104
  3. ABILIFY [Concomitant]
  4. NORVASC [Concomitant]
     Dates: start: 20070104
  5. ALLOPURINOL [Concomitant]
     Dates: start: 20070104
  6. LOVASTATIN [Concomitant]
     Dates: start: 20070104
  7. HYDROCHLOROTHIAZIDE [Concomitant]
     Dates: start: 20070104
  8. SERTRALINE HCL [Concomitant]
     Dates: start: 20070104

REACTIONS (5)
  - BLOOD CHOLESTEROL INCREASED [None]
  - DIABETIC NEUROPATHY [None]
  - HYPERLIPIDAEMIA [None]
  - OBESITY [None]
  - TYPE 2 DIABETES MELLITUS [None]
